FAERS Safety Report 9381318 (Version 3)
Quarter: 2014Q1

REPORT INFORMATION
  Report Type: Spontaneous
  Country: US (occurrence: US)
  Receive Date: 20130703
  Receipt Date: 20140314
  Transmission Date: 20141002
  Serious: Yes (Death, Hospitalization)
  Sender: FDA-Public Use
  Company Number: US-JNJFOC-20130613619

PATIENT
  Age: 75 Year
  Sex: Male
  Weight: 106.6 kg

DRUGS (14)
  1. XARELTO [Suspect]
     Indication: THROMBOSIS PROPHYLAXIS
     Route: 048
     Dates: start: 20130531
  2. XARELTO [Suspect]
     Indication: CEREBROVASCULAR ACCIDENT PROPHYLAXIS
     Route: 048
     Dates: start: 20130531
  3. XARELTO [Suspect]
     Indication: ATRIAL FIBRILLATION
     Route: 048
     Dates: start: 20130531
  4. ASPIRIN [Suspect]
     Indication: ANTIPLATELET THERAPY
     Route: 065
     Dates: start: 20130530
  5. BRILINTA [Suspect]
     Indication: ANTIPLATELET THERAPY
     Route: 065
     Dates: start: 20130530
  6. LASIX [Concomitant]
     Route: 065
     Dates: start: 20130601, end: 20130608
  7. CARDIZEM [Concomitant]
     Route: 065
  8. ACCUPRIL [Concomitant]
     Route: 065
     Dates: start: 2011, end: 20130608
  9. METFORMIN [Concomitant]
     Route: 065
  10. POTASSIUM CHLORIDE [Concomitant]
     Route: 065
  11. ALDACTONE [Concomitant]
     Route: 065
     Dates: start: 20130517, end: 20130618
  12. LIPITOR [Concomitant]
     Route: 065
  13. GLYBURIDE [Concomitant]
     Route: 065
  14. MVI [Concomitant]
     Route: 065

REACTIONS (5)
  - Haemorrhage intracranial [Fatal]
  - Haemorrhagic stroke [Fatal]
  - Renal failure acute [Unknown]
  - Fall [Unknown]
  - Head injury [Unknown]
